FAERS Safety Report 10948883 (Version 3)
Quarter: 2015Q3

REPORT INFORMATION
  Report Type: Spontaneous
  Country: US (occurrence: US)
  Receive Date: 20150324
  Receipt Date: 20150910
  Transmission Date: 20151125
  Serious: Yes (Other)
  Sender: FDA-Public Use
  Company Number: US-PFIZER INC-2015100750

PATIENT
  Age: 54 Year
  Sex: Female
  Weight: 75 kg

DRUGS (16)
  1. CELEBREX [Suspect]
     Active Substance: CELECOXIB
     Indication: PAIN
  2. ATENOLOL. [Concomitant]
     Active Substance: ATENOLOL
     Dosage: 50 MG, DAILY
     Dates: start: 20140101
  3. ESTRADIOL. [Concomitant]
     Active Substance: ESTRADIOL
     Indication: MENOPAUSE
  4. LORAZEPAM. [Concomitant]
     Active Substance: LORAZEPAM
     Dosage: 1MG AT BEDTIME WHICH SHE COULD TAKE IT TWICE DAILY IF SHE NEEDS TO
     Dates: start: 19920101
  5. HYDROCHLOROTHIAZIDE. [Concomitant]
     Active Substance: HYDROCHLOROTHIAZIDE
     Dosage: 25 MG, 1X/DAY
     Dates: start: 20120101
  6. NORTRIPTYLINE [Concomitant]
     Active Substance: NORTRIPTYLINE
     Indication: SLEEP DISORDER
  7. FLONASE [Concomitant]
     Active Substance: FLUTICASONE PROPIONATE
     Indication: HYPERSENSITIVITY
     Dosage: EVERY NIGHT
     Dates: start: 19920101
  8. CELEBREX [Suspect]
     Active Substance: CELECOXIB
     Indication: ARTHRITIS
  9. SKELAXIN [Concomitant]
     Active Substance: METAXALONE
     Indication: POST-TRAUMATIC NECK SYNDROME
     Dosage: 800 MG, UNK
     Dates: start: 20140401
  10. SKELAXIN [Concomitant]
     Active Substance: METAXALONE
     Indication: FIBROMYALGIA
  11. NORTRIPTYLINE [Concomitant]
     Active Substance: NORTRIPTYLINE
     Indication: FIBROMYALGIA
     Dosage: 100 MG, 1X/DAY (TWO 50 MG TABLETS AT BEDTIME)
     Dates: start: 19900101
  12. ESTRADIOL. [Concomitant]
     Active Substance: ESTRADIOL
     Indication: HOT FLUSH
     Dosage: 1 MG, 1X/DAY
     Dates: start: 20130101
  13. LYRICA [Suspect]
     Active Substance: PREGABALIN
     Dosage: 50 MG, 1X/DAY
     Dates: start: 20150319, end: 20150324
  14. LYRICA [Suspect]
     Active Substance: PREGABALIN
     Indication: FIBROMYALGIA
     Dosage: 50 MG, 2X/DAY
     Dates: start: 201503
  15. CELEBREX [Suspect]
     Active Substance: CELECOXIB
     Indication: JOINT SWELLING
     Dosage: 200 MG, 1X/DAY
     Dates: start: 19940101, end: 20150415
  16. CELEBREX [Suspect]
     Active Substance: CELECOXIB
     Indication: ARTHRALGIA

REACTIONS (9)
  - Hypertension [Recovered/Resolved]
  - Vision blurred [Recovered/Resolved]
  - Sunburn [Unknown]
  - Feeling jittery [Recovered/Resolved]
  - Pain [Recovered/Resolved]
  - Headache [Recovered/Resolved]
  - Chills [Recovered/Resolved]
  - Diarrhoea [Recovered/Resolved]
  - Decreased appetite [Recovered/Resolved]

NARRATIVE: CASE EVENT DATE: 2015
